FAERS Safety Report 6087661-9 (Version None)
Quarter: 2009Q1

REPORT INFORMATION
  Report Type: 
  Country: None (occurrence: None)
  Receive Date: 20090223
  Receipt Date: 20090218
  Transmission Date: 20090719
  Serious: Yes (Hospitalization)
  Sender: FDA-Public Use
  Company Number: US-BRISTOL-MYERS SQUIBB COMPANY-14511653

PATIENT
  Age: 66 Year
  Sex: Male

DRUGS (4)
  1. IXABEPILONE [Suspect]
     Indication: PROSTATE CANCER
     Dosage: CYCLE 21DAYS; OVER 3 HOURS ON DAY 1;THERAPY INITIATED ON 13JAN2009
     Route: 042
     Dates: start: 20090203, end: 20090203
  2. MITOXANTRONE [Suspect]
     Indication: PROSTATE CANCER
     Dosage: OVER 30MINUTES ON DAY 1; THERAPY INITIATED ON 13JAN2009
     Route: 042
     Dates: start: 20090203, end: 20090203
  3. PREDNISONE TAB [Suspect]
     Indication: PROSTATE CANCER
     Dosage: ON DAYS 1-21; THERAPY INITIATED ON 13JAN2009
     Route: 048
     Dates: start: 20090205, end: 20090205
  4. PEGFILGRASTIM [Suspect]
     Indication: PROSTATE CANCER
     Dosage: ON DAY 2; THERAPY INITIATED ON 13JAN2009
     Route: 058
     Dates: start: 20090204, end: 20090204

REACTIONS (1)
  - GASTROENTERITIS [None]
